FAERS Safety Report 6617203-8 (Version None)
Quarter: 2010Q1

REPORT INFORMATION
  Report Type: 
  Country: None (occurrence: None)
  Receive Date: 20100307
  Receipt Date: 20090602
  Transmission Date: 20100710
  Serious: No
  Sender: FDA-Public Use
  Company Number: US-BAYER-200831258NA

PATIENT
  Age: 44 Year
  Sex: Female
  Weight: 78 kg

DRUGS (1)
  1. MIRENA [Suspect]
     Indication: CONTRACEPTION
     Dosage: CONTINUOUS
     Route: 015
     Dates: start: 20080711

REACTIONS (2)
  - LIBIDO DECREASED [None]
  - SENSORY LOSS [None]
